FAERS Safety Report 21759521 (Version 3)
Quarter: 2023Q1

REPORT INFORMATION
  Report Type: Report from Study
  Country: BR (occurrence: BR)
  Receive Date: 20221221
  Receipt Date: 20230109
  Transmission Date: 20230417
  Serious: Yes (Other)
  Sender: FDA-Public Use
  Company Number: BR-JNJFOC-20221125284

PATIENT
  Age: 65 Year
  Sex: Female
  Weight: 60 kg

DRUGS (4)
  1. INFLIXIMAB [Suspect]
     Active Substance: INFLIXIMAB
     Indication: Rheumatoid arthritis
     Route: 041
  2. REMICADE [Suspect]
     Active Substance: INFLIXIMAB
     Indication: Rheumatoid arthritis
     Route: 041
     Dates: start: 20200109
  3. FOLIC ACID [Concomitant]
     Active Substance: FOLIC ACID
  4. METHOTREXATE [Concomitant]
     Active Substance: METHOTREXATE

REACTIONS (12)
  - Facial bones fracture [Unknown]
  - Fall [Unknown]
  - Lip pain [Unknown]
  - Nasal septum deviation [Unknown]
  - Face injury [Unknown]
  - Peripheral swelling [Unknown]
  - Memory impairment [Unknown]
  - Pulmonary pain [Recovering/Resolving]
  - Pain in extremity [Unknown]
  - COVID-19 [Unknown]
  - Pain [Recovering/Resolving]
  - Fatigue [Unknown]

NARRATIVE: CASE EVENT DATE: 20210101
